FAERS Safety Report 9638717 (Version 2)
Quarter: 2013Q4

REPORT INFORMATION
  Report Type: Spontaneous
  Country: AU (occurrence: AU)
  Receive Date: 20131022
  Receipt Date: 20131022
  Transmission Date: 20140711
  Serious: Yes (Other)
  Sender: FDA-Public Use
  Company Number: AU-ACTAVIS-2013-14611

PATIENT
  Age: 60 Year
  Sex: Female

DRUGS (1)
  1. OXYTROL [Suspect]
     Indication: INCONTINENCE
     Dosage: UNK
     Route: 062
     Dates: start: 20130221, end: 20130729

REACTIONS (4)
  - Application site reaction [Not Recovered/Not Resolved]
  - Application site erythema [Not Recovered/Not Resolved]
  - Application site irritation [Not Recovered/Not Resolved]
  - Application site pain [Not Recovered/Not Resolved]
